FAERS Safety Report 8552047 (Version 5)
Quarter: 2013Q1

REPORT INFORMATION
  Report Type: Report from Study
  Country: US (occurrence: US)
  Receive Date: 20120508
  Receipt Date: 20130313
  Transmission Date: 20140127
  Serious: Yes (Hospitalization)
  Sender: FDA-Public Use
  Company Number: US-ROCHE-1066389

PATIENT
  Age: 51 Year
  Sex: Female
  Weight: 109 kg

DRUGS (8)
  1. PEG-INTERFERON ALFA 2A [Suspect]
     Indication: CHRONIC HEPATITIS C
     Route: 065
     Dates: start: 20110825, end: 20111104
  2. RIBAVIRIN [Suspect]
     Indication: CHRONIC HEPATITIS C
     Route: 065
     Dates: start: 20110825, end: 20111107
  3. LISINOPRIL [Concomitant]
     Route: 065
     Dates: start: 1991
  4. PHENERGAN [Concomitant]
     Route: 065
     Dates: start: 20110915
  5. CELEXA [Concomitant]
     Route: 065
     Dates: start: 20111020
  6. AMBIEN [Concomitant]
     Route: 065
     Dates: start: 20111115
  7. NORVASC [Concomitant]
     Route: 065
     Dates: start: 20111115
  8. ALISPORIVIR [Suspect]
     Indication: CHRONIC HEPATITIS C
     Route: 065
     Dates: start: 20110825, end: 20111107

REACTIONS (3)
  - Hypertension [Recovered/Resolved]
  - Pneumonia [Recovered/Resolved]
  - Chronic obstructive pulmonary disease [Recovered/Resolved]
